FAERS Safety Report 18108708 (Version 1)
Quarter: 2020Q3

REPORT INFORMATION
  Report Type: Spontaneous
  Country: US (occurrence: US)
  Receive Date: 20200804
  Receipt Date: 20200804
  Transmission Date: 20201103
  Serious: No
  Sender: FDA-Public Use
  Company Number: US-AMAG PHARMACEUTICALS, INC.-AMAG202002415

PATIENT
  Sex: Female

DRUGS (1)
  1. INTRAROSA [Suspect]
     Active Substance: PRASTERONE
     Indication: PRODUCT USED FOR UNKNOWN INDICATION
     Dosage: THE PATIENT REPORTS THAT SHE HAS BEEN USING INTRAROSA FOR ^A YEAR AND A HALF TO TWO YEARS^
     Route: 067

REACTIONS (6)
  - Discomfort [Not Recovered/Not Resolved]
  - Haematuria [Recovered/Resolved]
  - Pollakiuria [Recovered/Resolved]
  - Urinary tract infection [Unknown]
  - Urine abnormality [Recovered/Resolved]
  - Dysuria [Recovered/Resolved]

NARRATIVE: CASE EVENT DATE: 202007
